FAERS Safety Report 4398894-1 (Version None)
Quarter: 2004Q3

REPORT INFORMATION
  Report Type: 
  Country: None (occurrence: None)
  Receive Date: 20040712
  Receipt Date: 20040622
  Transmission Date: 20050211
  Serious: Yes (Hospitalization, Other)
  Sender: FDA-Public Use
  Company Number: USA040670885

PATIENT
  Sex: Female

DRUGS (3)
  1. HUMALOG [Suspect]
  2. HUMULIN N [Suspect]
  3. ACTOS [Concomitant]

REACTIONS (3)
  - ANGIOPLASTY [None]
  - BLOOD GLUCOSE INCREASED [None]
  - CARDIAC OPERATION [None]
